FAERS Safety Report 6524571-4 (Version None)
Quarter: 2010Q1

REPORT INFORMATION
  Report Type: 
  Country: None (occurrence: None)
  Receive Date: 20100104
  Receipt Date: 20091229
  Transmission Date: 20100710
  Serious: Yes (Other)
  Sender: FDA-Public Use
  Company Number: GB-ROCHE-676951

PATIENT
  Age: 5 Year
  Sex: Male

DRUGS (1)
  1. TAMIFLU [Suspect]
     Indication: H1N1 INFLUENZA
     Dosage: DRUG WAS WITHDRAWN.
     Route: 065
     Dates: start: 20091222, end: 20091224

REACTIONS (1)
  - HALLUCINATION [None]
